FAERS Safety Report 5592804-7 (Version None)
Quarter: 2008Q1

REPORT INFORMATION
  Report Type: 
  Country: None (occurrence: None)
  Receive Date: 20080114
  Receipt Date: 20080108
  Transmission Date: 20080703
  Serious: Yes (Other)
  Sender: FDA-Public Use
  Company Number: 2008000677

PATIENT
  Sex: Male

DRUGS (1)
  1. BENGAY PAIN RELIEVING PATCH (MENTHOL) [Suspect]
     Dosage: 1 PATCH, TOPICAL
     Route: 061

REACTIONS (1)
  - APPLICATION SITE BURN [None]
